FAERS Safety Report 8143905-0 (Version None)
Quarter: 2012Q1

REPORT INFORMATION
  Report Type: 
  Country: None (occurrence: None)
  Receive Date: 20120217
  Receipt Date: 20120213
  Transmission Date: 20120608
  Serious: Yes (Hospitalization, Other)
  Sender: FDA-Public Use
  Company Number: GB-ABBOTT-12P-167-0897569-00

PATIENT
  Sex: Female
  Weight: 58.2 kg

DRUGS (1)
  1. HUMIRA [Suspect]
     Indication: RHEUMATOID ARTHRITIS
     Dates: start: 20100118, end: 20120101

REACTIONS (4)
  - NEPHROTIC SYNDROME [None]
  - HEADACHE [None]
  - HYPERTHERMIA [None]
  - GLOMERULONEPHRITIS MEMBRANOUS [None]
